FAERS Safety Report 4389588-7 (Version None)
Quarter: 2004Q3

REPORT INFORMATION
  Report Type: 
  Country: None (occurrence: None)
  Receive Date: 20040702
  Receipt Date: 20040625
  Transmission Date: 20050211
  Serious: Yes (Hospitalization)
  Sender: FDA-Public Use
  Company Number: FR-MERCK-0406FRA00106

PATIENT
  Age: 67 Year
  Sex: Male

DRUGS (12)
  1. PROPOXYPHENE HCL AND ACETAMINOPHEN [Suspect]
     Route: 048
     Dates: start: 20040528, end: 20040609
  2. ALBUTEROL SULFATE [Concomitant]
     Route: 055
  3. CIPROFLOXACIN HCL [Suspect]
     Indication: ERYSIPELAS
     Route: 051
     Dates: start: 20040601, end: 20040607
  4. CLOXACILLIN SODIUM [Suspect]
     Indication: ERYSIPELAS
     Route: 051
     Dates: start: 20040601, end: 20040607
  5. DIGOXIN [Concomitant]
     Route: 065
  6. ENOXAPARIN SODIUM [Suspect]
     Route: 058
     Dates: start: 20040528, end: 20040609
  7. FUROSEMIDE [Concomitant]
     Route: 065
  8. LERCANIDIPINE HYDROCHLORIDE [Concomitant]
     Route: 065
  9. SINGULAIR [Suspect]
     Indication: ASTHMA
     Route: 048
     Dates: end: 20040609
  10. NITROGLYCERIN [Concomitant]
     Route: 065
  11. TRAMADOL HCL [Suspect]
     Route: 048
     Dates: start: 20040528, end: 20040607
  12. URAPIDIL [Concomitant]
     Route: 065

REACTIONS (3)
  - CUTANEOUS VASCULITIS [None]
  - ERYSIPELAS [None]
  - LOCALISED OSTEOARTHRITIS [None]
